FAERS Safety Report 24636437 (Version 1)
Quarter: 2024Q4

REPORT INFORMATION
  Report Type: Other
  Country: CA (occurrence: CA)
  Receive Date: 20241119
  Receipt Date: 20241119
  Transmission Date: 20250115
  Serious: Yes (Hospitalization, Disabling, Other)
  Sender: APOTEX
  Company Number: CA-APOTEX-2024AP017598

PATIENT
  Age: 73 Year
  Sex: Female
  Weight: 81 kg

DRUGS (2)
  1. MOMETASONE [Interacting]
     Active Substance: MOMETASONE
     Indication: Chronic obstructive pulmonary disease
     Dosage: 400 MICROGRAM, QD
  2. SPORANOX [Interacting]
     Active Substance: ITRACONAZOLE
     Indication: Onychomycosis
     Dosage: 200 MILLIGRAM, QD
     Route: 065

REACTIONS (4)
  - Cushing^s syndrome [Recovering/Resolving]
  - Adrenal insufficiency [Recovering/Resolving]
  - Diabetes mellitus [Recovering/Resolving]
  - Drug interaction [Recovering/Resolving]
